FAERS Safety Report 19181164 (Version 3)
Quarter: 2021Q2

REPORT INFORMATION
  Report Type: Report from Study
  Country: FR (occurrence: FR)
  Receive Date: 20210426
  Receipt Date: 20210528
  Transmission Date: 20210717
  Serious: Yes (Death)
  Sender: FDA-Public Use
  Company Number: FR-BAYER-2021-130085

PATIENT
  Age: 92 Year
  Sex: Female

DRUGS (6)
  1. INTERFERON BETA ? 1B [Suspect]
     Active Substance: INTERFERON BETA-1B
     Indication: COVID-19
     Dosage: UNK
     Route: 055
     Dates: start: 20210412, end: 20210415
  2. SYMBICORT [Concomitant]
     Active Substance: BUDESONIDE\FORMOTEROL FUMARATE DIHYDRATE
  3. BISOPROLOL [Concomitant]
     Active Substance: BISOPROLOL
  4. SERESTA [Concomitant]
     Active Substance: OXAZEPAM
  5. ELIQUIS [Concomitant]
     Active Substance: APIXABAN
  6. PARACETAMOL [Concomitant]
     Active Substance: ACETAMINOPHEN

REACTIONS (1)
  - Oxygen saturation decreased [Fatal]

NARRATIVE: CASE EVENT DATE: 20210415
